FAERS Safety Report 7218072-8 (Version None)
Quarter: 2011Q1

REPORT INFORMATION
  Report Type: 
  Country: None (occurrence: None)
  Receive Date: 20110110
  Receipt Date: 20110103
  Transmission Date: 20110831
  Serious: Yes (Hospitalization, Other)
  Sender: FDA-Public Use
  Company Number: US-TEVA-167716USA

PATIENT
  Sex: Male

DRUGS (1)
  1. QUININE SULFATE [Suspect]
     Indication: MUSCLE SPASMS
     Dates: start: 20040712, end: 20050624

REACTIONS (7)
  - DIABETES MELLITUS [None]
  - BLOOD DISORDER [None]
  - ANGIOPATHY [None]
  - ANEURYSM [None]
  - HAEMORRHAGE INTRACRANIAL [None]
  - HEARING IMPAIRED [None]
  - THROMBOCYTOPENIA [None]
